FAERS Safety Report 14857847 (Version 1)
Quarter: 2018Q2

REPORT INFORMATION
  Report Type: Spontaneous
  Country: FR (occurrence: FR)
  Receive Date: 20180508
  Receipt Date: 20180508
  Transmission Date: 20180711
  Serious: Yes (Death, Other)
  Sender: FDA-Public Use
  Company Number: FR-MERCK KGAA-2047341

PATIENT
  Age: 73 Year
  Sex: Female

DRUGS (1)
  1. NOVOTHYROX [Suspect]
     Active Substance: LEVOTHYROXINE SODIUM
     Indication: PRODUCT USED FOR UNKNOWN INDICATION

REACTIONS (11)
  - Weight decreased [None]
  - Vitamin D increased [None]
  - Soft tissue sarcoma [None]
  - Bedridden [None]
  - Abdominal pain [None]
  - Asthenia [Fatal]
  - Suicidal ideation [None]
  - Fatigue [None]
  - Negative thoughts [None]
  - Brain natriuretic peptide increased [None]
  - Affective disorder [None]

NARRATIVE: CASE EVENT DATE: 2017
